FAERS Safety Report 8979031 (Version 1)
Quarter: 2013Q1

REPORT INFORMATION
  Report Type: Spontaneous
  Country: US (occurrence: None)
  Receive Date: 20121218
  Receipt Date: 20121218
  Transmission Date: 20140127
  Serious: Yes (Hospitalization)
  Sender: FDA-Public Use
  Company Number: None

PATIENT
  Age: 67 Year
  Sex: Female
  Weight: 57.61 kg

DRUGS (8)
  1. IPILIMUMAB, 3MG/KG [Suspect]
     Route: 042
     Dates: start: 20121119
  2. RADIATION THERAPY [Concomitant]
  3. CRESTOR [Concomitant]
  4. DECADRON TAPER [Concomitant]
  5. TYLENOL [Concomitant]
  6. TRAMADOL [Concomitant]
  7. CALCIUM [Concomitant]
  8. MULTIVITAMIN [Concomitant]

REACTIONS (2)
  - Muscular weakness [None]
  - Pain in extremity [None]
